FAERS Safety Report 9495022 (Version 2)
Quarter: 2013Q3

REPORT INFORMATION
  Report Type: Spontaneous
  Country: US (occurrence: None)
  Receive Date: 20130828
  Receipt Date: 20130912
  Transmission Date: 20140515
  Serious: Yes (Other)
  Sender: FDA-Public Use
  Company Number: JPI-P-034684

PATIENT
  Age: 41 Year
  Sex: Male

DRUGS (2)
  1. XYREM (500 MILLIGRAM/MILLILITERS, SOLUTION) (SODIUM OXYBATE) [Suspect]
     Indication: CATAPLEXY
     Dosage: 4.5GM (2.25GM, 2 IN 1 D) ORAL
     Route: 048
     Dates: start: 20121025, end: 2012
  2. HYDROCODONE [Suspect]
     Indication: PAIN
     Dosage: UNKNOWN, SINGLE
     Dates: start: 201308

REACTIONS (4)
  - Nephrolithiasis [None]
  - Pain [None]
  - Malaise [None]
  - Vomiting [None]
